FAERS Safety Report 14910178 (Version 1)
Quarter: 2018Q2

REPORT INFORMATION
  Report Type: Spontaneous
  Country: US (occurrence: US)
  Receive Date: 20180430
  Receipt Date: 20180430
  Transmission Date: 20180711
  Serious: Yes (Other)
  Sender: FDA-Public Use
  Company Number: None

PATIENT
  Age: 50 Year
  Sex: Female
  Weight: 86.64 kg

DRUGS (13)
  1. CONTRAVE [Suspect]
     Active Substance: BUPROPION HYDROCHLORIDE\NALTREXONE HYDROCHLORIDE
     Indication: WEIGHT DECREASED
     Dosage: ?          QUANTITY:1 DF DOSAGE FORM;?
     Route: 048
     Dates: start: 20180301, end: 20180414
  2. OMEPRAZOL DR [Concomitant]
  3. TOPAMATE [Concomitant]
     Active Substance: TOPIRAMATE
  4. BUPROPION HCL [Concomitant]
     Active Substance: BUPROPION HYDROCHLORIDE
  5. CYCLOBENZAPRINE. [Concomitant]
     Active Substance: CYCLOBENZAPRINE
  6. AMITRIPTYLINE HCL [Concomitant]
     Active Substance: AMITRIPTYLINE
  7. TIZANIDINE HCL [Concomitant]
     Active Substance: TIZANIDINE HYDROCHLORIDE
  8. ATORVASTATIN [Concomitant]
     Active Substance: ATORVASTATIN
  9. POTASSIUM [Concomitant]
     Active Substance: POTASSIUM
  10. SERTRALINE HCL [Concomitant]
     Active Substance: SERTRALINE HYDROCHLORIDE
  11. FUROSEMIDE. [Concomitant]
     Active Substance: FUROSEMIDE
  12. CLONAZEPAM. [Concomitant]
     Active Substance: CLONAZEPAM
  13. VITAMIN D2 (ERGO) [Concomitant]

REACTIONS (4)
  - Swelling face [None]
  - Peripheral swelling [None]
  - Joint swelling [None]
  - Hunger [None]

NARRATIVE: CASE EVENT DATE: 20180401
